FAERS Safety Report 5048600-2 (Version None)
Quarter: 2006Q2

REPORT INFORMATION
  Report Type: 
  Country: None (occurrence: None)
  Receive Date: 20060628
  Receipt Date: 20060615
  Transmission Date: 20061013
  Serious: Yes (Life-Threatening, Other)
  Sender: FDA-Public Use
  Company Number: 200610713BYL

PATIENT
  Age: 6 Year
  Sex: Male
  Weight: 22 kg

DRUGS (2)
  1. GAMIMUNE N 5% [Suspect]
     Indication: KAWASAKI'S DISEASE
     Dosage: INTRAVENOUS DRIP
     Route: 041
     Dates: start: 20060518
  2. VENOGLOBULIN-IH (IMMUNOGLOBULIN [IMMUNOGLOBULIN]) [Suspect]
     Dosage: INTRAVENOUS
     Route: 042

REACTIONS (2)
  - ANAPHYLACTIC SHOCK [None]
  - MENINGITIS ASEPTIC [None]
